FAERS Safety Report 7956875-2 (Version None)
Quarter: 2011Q4

REPORT INFORMATION
  Report Type: 
  Country: None (occurrence: None)
  Receive Date: 20111205
  Receipt Date: 20111020
  Transmission Date: 20120403
  Serious: No
  Sender: FDA-Public Use
  Company Number: US-BAYER-2011-102390

PATIENT

DRUGS (1)
  1. ALEVE (CAPLET) [Suspect]
     Dosage: UNK
     Dates: start: 20111020

REACTIONS (1)
  - NO ADVERSE EVENT [None]
